FAERS Safety Report 23775842 (Version 8)
Quarter: 2024Q4

REPORT INFORMATION
  Report Type: Spontaneous
  Country: US (occurrence: US)
  Receive Date: 20240424
  Receipt Date: 20241216
  Transmission Date: 20250115
  Serious: Yes (Hospitalization, Other)
  Sender: SANOFI AVENTIS
  Company Number: US-SA-SAC20240419000090

PATIENT
  Age: 11 Year
  Sex: Female

DRUGS (1)
  1. LUMIZYME [Suspect]
     Active Substance: ALGLUCOSIDASE ALFA
     Dosage: 900 MG, QOW
     Route: 042
     Dates: end: 2024

REACTIONS (2)
  - Vascular device occlusion [Unknown]
  - Poor venous access [Unknown]

NARRATIVE: CASE EVENT DATE: 20240412
